FAERS Safety Report 17088490 (Version 4)
Quarter: 2020Q1

REPORT INFORMATION
  Report Type: Spontaneous
  Country: IT (occurrence: IT)
  Receive Date: 20191128
  Receipt Date: 20200318
  Transmission Date: 20200409
  Serious: Yes (Hospitalization, Other)
  Sender: FDA-Public Use
  Company Number: NVSC2019IT047279

PATIENT
  Age: 60 Year
  Sex: Male

DRUGS (23)
  1. OXALIPLATIN. [Suspect]
     Active Substance: OXALIPLATIN
     Indication: METASTASES TO LUNG
  2. FLUOROURACILE [Suspect]
     Active Substance: FLUOROURACIL
     Indication: METASTASES TO LUNG
  3. BEVACIZUMAB. [Suspect]
     Active Substance: BEVACIZUMAB
     Indication: METASTASES TO LIVER
  4. CALCIUM FOLINATE [Suspect]
     Active Substance: LEUCOVORIN CALCIUM
     Indication: COLORECTAL CANCER
     Dosage: SIX CYCLES OF FOLFIRI RECEIVED
     Route: 065
     Dates: start: 201402
  5. FLUOROURACILE [Suspect]
     Active Substance: FLUOROURACIL
     Indication: METASTASES TO LYMPH NODES
  6. BEVACIZUMAB. [Suspect]
     Active Substance: BEVACIZUMAB
     Indication: METASTASES TO LUNG
  7. IRINOTECAN [Suspect]
     Active Substance: IRINOTECAN
     Indication: METASTASES TO LIVER
  8. IRINOTECAN [Suspect]
     Active Substance: IRINOTECAN
     Indication: METASTASES TO LUNG
  9. CETUXIMAB. [Suspect]
     Active Substance: CETUXIMAB
     Indication: COLORECTAL CANCER
     Dosage: UNK (THIRD-LINE CHEMOTHERAPY ALONGSIDE IRINOTECAN FOLLOWING DISEASE PROGRESSION)
     Route: 065
     Dates: start: 201610
  10. FOLINIC ACID [Suspect]
     Active Substance: LEUCOVORIN
     Indication: METASTASES TO LUNG
     Dosage: UNK
     Route: 065
     Dates: start: 201511
  11. FLUOROURACILE [Suspect]
     Active Substance: FLUOROURACIL
     Indication: METASTASES TO LIVER
  12. OXALIPLATIN. [Suspect]
     Active Substance: OXALIPLATIN
     Indication: COLORECTAL CANCER
     Dosage: FOLFOX REGIMEN; REMISSION AFTER 11 CYCLES
     Route: 065
     Dates: start: 201511
  13. FOLINIC ACID [Suspect]
     Active Substance: LEUCOVORIN
     Indication: COLORECTAL CANCER
     Dosage: SIX CYCLES OF FOLFIRI RECEIVED
     Route: 065
     Dates: start: 201402
  14. OXALIPLATIN. [Suspect]
     Active Substance: OXALIPLATIN
     Indication: METASTASES TO LIVER
  15. IRINOTECAN [Suspect]
     Active Substance: IRINOTECAN
     Indication: COLORECTAL CANCER
     Dosage: UNK (SIX CYCLES OF FOLFIRI RECEIVED)
     Route: 065
     Dates: start: 201402
  16. IRINOTECAN [Suspect]
     Active Substance: IRINOTECAN
     Indication: METASTASES TO LYMPH NODES
  17. OXALIPLATIN. [Suspect]
     Active Substance: OXALIPLATIN
     Indication: METASTASES TO LYMPH NODES
  18. CALCIUM FOLINATE [Suspect]
     Active Substance: LEUCOVORIN CALCIUM
     Dosage: FOLFOX REGIMEN; REMISSION AFTER 11 CYCLES
     Route: 065
     Dates: start: 201511
  19. FLUOROURACILE [Suspect]
     Active Substance: FLUOROURACIL
     Indication: COLORECTAL CANCER
     Dosage: UNK (6 CYCLES) FOLFOX REGIMEN; REMISSION AFTER 11 CYCLES
     Route: 065
     Dates: start: 201511
  20. BEVACIZUMAB. [Suspect]
     Active Substance: BEVACIZUMAB
     Indication: COLORECTAL CANCER
     Dosage: SIX CYCLES RECEIVED
     Route: 065
     Dates: start: 201402
  21. BEVACIZUMAB. [Suspect]
     Active Substance: BEVACIZUMAB
     Indication: METASTASES TO LYMPH NODES
  22. FOLINIC ACID [Suspect]
     Active Substance: LEUCOVORIN
     Indication: METASTASES TO LIVER
  23. FOLINIC ACID [Suspect]
     Active Substance: LEUCOVORIN
     Indication: METASTASES TO LYMPH NODES

REACTIONS (5)
  - Bacteraemia [Recovered/Resolved]
  - Pyrexia [Recovering/Resolving]
  - Colorectal cancer [Unknown]
  - Device related infection [Recovered/Resolved]
  - Malignant neoplasm progression [Unknown]

NARRATIVE: CASE EVENT DATE: 201610
